FAERS Safety Report 5427728-9 (Version None)
Quarter: 2007Q3

REPORT INFORMATION
  Report Type: 
  Country: None (occurrence: None)
  Receive Date: 20070828
  Receipt Date: 20070411
  Transmission Date: 20080115
  Serious: No
  Sender: FDA-Public Use
  Company Number: US-BRISTOL-MYERS SQUIBB COMPANY-13744933

PATIENT
  Age: 52 Year
  Sex: Female
  Weight: 86 kg

DRUGS (19)
  1. STADOL [Suspect]
     Indication: PAIN
     Dates: start: 20070308
  2. PHENERGAN HCL [Suspect]
     Indication: PAIN
     Dates: start: 20070308
  3. FUROSEMIDE [Concomitant]
  4. THIORIDAZINE HCL [Concomitant]
  5. ASPIRIN [Concomitant]
  6. EFFEXOR [Concomitant]
  7. ATENOLOL [Concomitant]
  8. GLIPIZIDE [Concomitant]
  9. KEPPRA [Concomitant]
  10. METOLAZONE [Concomitant]
  11. WARFARIN [Concomitant]
  12. TRICOR [Concomitant]
  13. FOLIC ACID [Concomitant]
  14. VYTORIN [Concomitant]
  15. AMITRIPTYLINE HCL [Concomitant]
  16. TRENTAL [Concomitant]
  17. NITROQUICK [Concomitant]
  18. NITROGLYCERIN [Concomitant]
     Route: 062
  19. HYDROCODONE BITARTRATE [Concomitant]

REACTIONS (3)
  - INSOMNIA [None]
  - MUSCULAR WEAKNESS [None]
  - RASH [None]
